FAERS Safety Report 6027243-8 (Version None)
Quarter: 2008Q4

REPORT INFORMATION
  Report Type: 
  Country: None (occurrence: None)
  Receive Date: 20081231
  Receipt Date: 20081231
  Transmission Date: 20090506
  Serious: No
  Sender: FDA-Public Use
  Company Number: None

PATIENT
  Age: 54 Year
  Sex: Female
  Weight: 77.1115 kg

DRUGS (1)
  1. MIRAPEX [Suspect]
     Indication: RESTLESS LEGS SYNDROME
     Dosage: 3 MG Q PM PO DAILY
     Route: 048
     Dates: start: 20071101, end: 20081230

REACTIONS (2)
  - NEUROPATHY PERIPHERAL [None]
  - OEDEMA PERIPHERAL [None]
